FAERS Safety Report 9126870 (Version 1)
Quarter: 2013Q1

REPORT INFORMATION
  Report Type: Spontaneous
  Country: US (occurrence: US)
  Receive Date: 20130122
  Receipt Date: 20130122
  Transmission Date: 20140127
  Serious: Yes (Other)
  Sender: FDA-Public Use
  Company Number: US-FRI-1000041882

PATIENT
  Age: 35 Year
  Sex: Female

DRUGS (1)
  1. VIIBRYD [Suspect]
     Dosage: 20 MG
     Route: 048

REACTIONS (2)
  - Blindness [Recovered/Resolved]
  - Dizziness [Unknown]
